FAERS Safety Report 6550342-9 (Version None)
Quarter: 2010Q1

REPORT INFORMATION
  Report Type: 
  Country: None (occurrence: None)
  Receive Date: 20100125
  Receipt Date: 20100112
  Transmission Date: 20100710
  Serious: Yes (Other)
  Sender: FDA-Public Use
  Company Number: HOAFF24312

PATIENT
  Age: 65 Year
  Sex: Female

DRUGS (22)
  1. HALOPERIDOL [Suspect]
     Indication: DELIRIUM
     Route: 041
  2. HALOPERIDOL [Suspect]
     Route: 041
  3. HALOPERIDOL [Suspect]
     Route: 041
  4. HALOPERIDOL [Suspect]
     Indication: AGITATION
     Route: 041
  5. HALOPERIDOL [Suspect]
     Route: 041
  6. HALOPERIDOL [Suspect]
     Route: 041
  7. LIDOCAINE [Concomitant]
  8. DIGOXIN [Concomitant]
  9. FUROSEMIDE [Concomitant]
  10. POTASSIUM CHLORIDE [Concomitant]
  11. ALPRAZOLAM [Concomitant]
  12. ENALAPRIL MALEATE [Concomitant]
  13. PREMARIN [Concomitant]
  14. COUMADIN [Concomitant]
  15. DOPAMINE HCL [Concomitant]
  16. NOREPINEPHRINE [Concomitant]
  17. HEPARIN [Concomitant]
  18. VANCOMYCIN [Concomitant]
  19. SUCRALFATE [Concomitant]
  20. SULFAMETHOXAZOLE AND TRIMETHOPRIM [Concomitant]
  21. MIDAZOLAM HCL [Concomitant]
  22. LORAZEPAM [Concomitant]

REACTIONS (3)
  - EXTRASYSTOLES [None]
  - TORSADE DE POINTES [None]
  - VENTRICULAR TACHYCARDIA [None]
